FAERS Safety Report 5279995-2 (Version None)
Quarter: 2007Q1

REPORT INFORMATION
  Report Type: 
  Country: None (occurrence: None)
  Receive Date: 20061229
  Receipt Date: 20060518
  Transmission Date: 20070707
  Serious: Yes (Other)
  Sender: FDA-Public Use
  Company Number: 2006UW09728

PATIENT
  Age: 80 Year
  Sex: Female
  Weight: 74.842 kg

DRUGS (3)
  1. CRESTOR [Suspect]
     Indication: BLOOD CHOLESTEROL INCREASED
     Dates: start: 20060201
  2. LOTREL [Concomitant]
  3. SYNTHROID [Concomitant]

REACTIONS (1)
  - LETHARGY [None]
